FAERS Safety Report 5573802-6 (Version None)
Quarter: 2007Q4

REPORT INFORMATION
  Report Type: 
  Country: None (occurrence: None)
  Receive Date: 20071226
  Receipt Date: 20071214
  Transmission Date: 20080405
  Serious: Yes (Hospitalization, Other)
  Sender: FDA-Public Use
  Company Number: GR-PFIZER INC-2007102271

PATIENT
  Sex: Male
  Weight: 90 kg

DRUGS (7)
  1. SU-011,248 [Suspect]
     Route: 048
     Dates: start: 20070213, end: 20071006
  2. OLMESARTAN MEDOXOMIL [Concomitant]
     Route: 048
     Dates: start: 20070628, end: 20070716
  3. GEMFIBROZIL [Concomitant]
     Route: 048
     Dates: start: 20070628, end: 20071102
  4. RABEPRAZOLE SODIUM [Concomitant]
     Route: 048
  5. ERCEFURYL [Concomitant]
     Route: 048
     Dates: start: 20070628, end: 20070716
  6. DAKTARIN [Concomitant]
     Route: 048
     Dates: start: 20070628, end: 20071102
  7. THYROHORMONE [Concomitant]
     Route: 048
     Dates: start: 20070827, end: 20071102

REACTIONS (1)
  - CARDIAC FAILURE [None]
